FAERS Safety Report 4412090-0 (Version None)
Quarter: 2004Q3

REPORT INFORMATION
  Report Type: 
  Country: None (occurrence: None)
  Receive Date: 20040730
  Receipt Date: 20040727
  Transmission Date: 20050211
  Serious: Yes (Hospitalization)
  Sender: FDA-Public Use
  Company Number: 86

PATIENT
  Age: 52 Year
  Sex: Female

DRUGS (8)
  1. MELPHALAN [Suspect]
     Indication: MULTIPLE MYELOMA
     Dosage: 312MG SEE DOSAGE TEXT
     Route: 042
     Dates: start: 20040708
  2. THALIDOMIDE [Suspect]
     Indication: MULTIPLE MYELOMA
     Route: 048
  3. BORTEZOMIB [Concomitant]
  4. DEXAMETHASONE [Concomitant]
  5. CISPLATIN [Concomitant]
  6. ADRIAMYCIN PFS [Concomitant]
  7. CYCLOPHOSPHAMIDE [Concomitant]
  8. ETOPOSIDE [Concomitant]

REACTIONS (6)
  - CARDIOVASCULAR DECONDITIONING [None]
  - DEHYDRATION [None]
  - MUCOSAL INFLAMMATION [None]
  - NAUSEA [None]
  - ORTHOSTATIC HYPOTENSION [None]
  - VOMITING [None]
